FAERS Safety Report 10512080 (Version 1)
Quarter: 2014Q3

REPORT INFORMATION
  Report Type: Spontaneous
  Country: US (occurrence: None)
  Receive Date: 20140926
  Receipt Date: 20140926
  Transmission Date: 20150326
  Serious: No
  Sender: FDA-Public Use
  Company Number: 1000068466

PATIENT
  Age: 78 Year
  Sex: Male

DRUGS (6)
  1. RAPAFLO(SILODOSIN) [Concomitant]
  2. LISINOPRIL(LISINOPRIL) [Concomitant]
     Active Substance: LISINOPRIL
  3. LIPITOR(ATORVASTATIN CALCIUM) [Concomitant]
  4. INSULIN [Concomitant]
     Active Substance: INSULIN NOS
  5. LINZESS [Suspect]
     Active Substance: LINACLOTIDE
     Indication: CONSTIPATION
     Route: 048
     Dates: start: 20140621
  6. COREG(CARVEDILOL) [Concomitant]

REACTIONS (1)
  - Drug ineffective [None]

NARRATIVE: CASE EVENT DATE: 20140621
